FAERS Safety Report 8603471-X (Version None)
Quarter: 2012Q3

REPORT INFORMATION
  Report Type: 
  Country: None (occurrence: None)
  Receive Date: 20120817
  Receipt Date: 20120810
  Transmission Date: 20120928
  Serious: Yes (Hospitalization, Other)
  Sender: FDA-Public Use
  Company Number: BR-PFIZER INC-2012195609

PATIENT
  Age: 54 Year
  Sex: Female
  Weight: 68 kg

DRUGS (2)
  1. LYRICA [Suspect]
     Indication: SYNOVIAL CYST
     Dosage: 75 MG, 2X/DAY
     Route: 048
     Dates: start: 20040810
  2. FLUOXETINE [Concomitant]
     Indication: DEPRESSION
     Dosage: 20 MG, 1X/DAY
     Dates: start: 20070101

REACTIONS (4)
  - OFF LABEL USE [None]
  - TENDON RUPTURE [None]
  - FORMICATION [None]
  - SYNOVIAL CYST [None]
